FAERS Safety Report 8274039-2 (Version None)
Quarter: 2012Q2

REPORT INFORMATION
  Report Type: 
  Country: None (occurrence: None)
  Receive Date: 20120406
  Receipt Date: 20120406
  Transmission Date: 20120825
  Serious: Yes (Hospitalization)
  Sender: FDA-Public Use
  Company Number: None

PATIENT
  Age: 59 Year
  Sex: Male
  Weight: 91 kg

DRUGS (2)
  1. CEFTRIAXONE [Suspect]
     Indication: STAPHYLOCOCCAL BACTERAEMIA
     Dosage: 2G IV Q 12 H
     Route: 042
     Dates: start: 20120301, end: 20120306
  2. CEFTRIAXONE [Suspect]
     Indication: MENINGISM
     Dosage: 2G IV Q 12 H
     Route: 042
     Dates: start: 20120301, end: 20120306

REACTIONS (3)
  - PYREXIA [None]
  - DERMATITIS EXFOLIATIVE [None]
  - HYPOTENSION [None]
